FAERS Safety Report 7243187-8 (Version None)
Quarter: 2011Q1

REPORT INFORMATION
  Report Type: 
  Country: None (occurrence: None)
  Receive Date: 20110125
  Receipt Date: 20110118
  Transmission Date: 20110831
  Serious: Yes (Hospitalization)
  Sender: FDA-Public Use
  Company Number: FR-PFIZER INC-2011011311

PATIENT
  Age: 35 Year
  Sex: Female

DRUGS (3)
  1. TERBINAFINE [Suspect]
     Indication: OSTEOMYELITIS
  2. TRIPHASIL-21 [Suspect]
     Dosage: UNK
     Dates: end: 20101027
  3. TERBINAFINE [Suspect]
     Indication: ONYCHOMYCOSIS
     Dosage: 1 DF, 1X/DAY
     Dates: start: 20100801, end: 20101027

REACTIONS (2)
  - CYTOLYTIC HEPATITIS [None]
  - PRURITUS [None]
